FAERS Safety Report 9308992 (Version 1)
Quarter: 2013Q2

REPORT INFORMATION
  Report Type: Spontaneous
  Country: JP (occurrence: JP)
  Receive Date: 20130524
  Receipt Date: 20130524
  Transmission Date: 20140414
  Serious: Yes (Hospitalization)
  Sender: FDA-Public Use
  Company Number: JP-ALEXION PHARMACEUTICALS INC.-A201301136

PATIENT
  Age: 67 Year
  Sex: Male

DRUGS (7)
  1. SOLIRIS 300MG [Suspect]
     Indication: PAROXYSMAL NOCTURNAL HAEMOGLOBINURIA
     Dosage: UNK
     Route: 042
     Dates: end: 20120907
  2. SOLIRIS 300MG [Suspect]
     Dosage: 900 MG, UNK
     Route: 042
  3. PREDNISOLONE [Concomitant]
     Dosage: 20 MG, QD
     Dates: start: 20021022
  4. PRIMOBOLAN [Concomitant]
     Dosage: 20 MG, QD
     Dates: start: 20020115
  5. BAKTAR [Concomitant]
     Dosage: 1 DF, BID
     Dates: start: 20030524
  6. BLOOD TRANSFUSION, AUXILIARY PRODUCTS [Concomitant]
     Dosage: 5 TIMES, 14 UNITS
     Dates: start: 2012, end: 2012
  7. BLOOD TRANSFUSION, AUXILIARY PRODUCTS [Concomitant]
     Dosage: 3 TIMES, 14 UNITS
     Dates: start: 2013, end: 2013

REACTIONS (1)
  - Pneumonia [Recovered/Resolved]
